FAERS Safety Report 5759121-3 (Version None)
Quarter: 2008Q2

REPORT INFORMATION
  Report Type: 
  Country: None (occurrence: None)
  Receive Date: 20080604
  Receipt Date: 20080530
  Transmission Date: 20081010
  Serious: Yes (Hospitalization)
  Sender: FDA-Public Use
  Company Number: DE-BOEHRINGER INGELHEIM GMBH, GERMANY-2008-BP-08514RO

PATIENT
  Age: 69 Year
  Sex: Male

DRUGS (4)
  1. DEXAMETHASONE TAB [Suspect]
     Indication: THROMBOCYTOPENIA
     Dates: start: 20060101, end: 20060101
  2. PIPERACILLIN AND TAZOBACTAM [Concomitant]
     Indication: PNEUMONIA LEGIONELLA
     Route: 042
  3. MOXIFLOXACIN HCL [Concomitant]
     Indication: PNEUMONIA LEGIONELLA
     Route: 042
  4. MOXIFLOXACIN HCL [Concomitant]
     Route: 048

REACTIONS (1)
  - PNEUMONIA LEGIONELLA [None]
